FAERS Safety Report 13589612 (Version 1)
Quarter: 2017Q2

REPORT INFORMATION
  Report Type: Spontaneous
  Country: US (occurrence: US)
  Receive Date: 20170526
  Receipt Date: 20170526
  Transmission Date: 20170830
  Serious: No
  Sender: FDA-Public Use
  Company Number: None

PATIENT
  Age: 53 Year
  Sex: Female

DRUGS (1)
  1. IBRANCE [Suspect]
     Active Substance: PALBOCICLIB
     Route: 048

REACTIONS (5)
  - Splenomegaly [None]
  - Transfusion [None]
  - Lung disorder [None]
  - Obstruction [None]
  - Renal disorder [None]

NARRATIVE: CASE EVENT DATE: 20170519
